FAERS Safety Report 6583288-0 (Version None)
Quarter: 2010Q1

REPORT INFORMATION
  Report Type: 
  Country: None (occurrence: None)
  Receive Date: 20100216
  Receipt Date: 20100208
  Transmission Date: 20100710
  Serious: Yes (Other)
  Sender: FDA-Public Use
  Company Number: B0633656A

PATIENT
  Sex: Female
  Weight: 78 kg

DRUGS (5)
  1. SEROXAT [Suspect]
     Indication: DEPRESSION
     Dosage: 15MG PER DAY
     Route: 048
     Dates: start: 19940203
  2. INDOMETHACIN [Concomitant]
     Route: 048
     Dates: start: 20091203
  3. OXAZEPAMUM [Concomitant]
     Route: 048
  4. PARACETAMOL [Concomitant]
     Route: 048
  5. TEMAZEPAM [Concomitant]

REACTIONS (3)
  - AGGRESSION [None]
  - INSOMNIA [None]
  - WITHDRAWAL SYNDROME [None]
